FAERS Safety Report 6150046-0 (Version None)
Quarter: 2009Q2

REPORT INFORMATION
  Report Type: 
  Country: None (occurrence: None)
  Receive Date: 20090407
  Receipt Date: 20090323
  Transmission Date: 20091009
  Serious: No
  Sender: FDA-Public Use
  Company Number: 232642K09USA

PATIENT
  Age: 53 Year
  Sex: Female

DRUGS (4)
  1. REBIF [Suspect]
     Indication: MULTIPLE SCLEROSIS
     Dosage: 44 MCG, 3 IN 1 WEEKS, SUBCUTANEOUS
     Route: 058
     Dates: start: 20090122, end: 20090101
  2. REBIF [Suspect]
     Indication: MULTIPLE SCLEROSIS
     Dosage: 44 MCG, 3 IN 1 WEEKS, SUBCUTANEOUS
     Route: 058
     Dates: start: 20090301
  3. NAPROXEN [Concomitant]
  4. UNSPECIFIED MEDICATION(ALL OTHER THERAPEUTIC PRODUCTS) [Concomitant]

REACTIONS (3)
  - FEELING ABNORMAL [None]
  - MUSCLE SPASMS [None]
  - MYALGIA [None]
